FAERS Safety Report 10364787 (Version 1)
Quarter: 2014Q3

REPORT INFORMATION
  Report Type: Spontaneous
  Country: BR (occurrence: BR)
  Receive Date: 20140806
  Receipt Date: 20140806
  Transmission Date: 20150326
  Serious: Yes (Other)
  Sender: FDA-Public Use
  Company Number: BR-ROCHE-1445286

PATIENT
  Sex: Male
  Weight: 71 kg

DRUGS (7)
  1. DIAZEPAM. [Suspect]
     Active Substance: DIAZEPAM
     Indication: BIPOLAR DISORDER
     Route: 048
     Dates: start: 2001
  2. INSULIN [Concomitant]
     Active Substance: INSULIN NOS
     Dosage: 5 APPLICATIONS OF 20MG FOR  3 MONTHS
     Route: 065
  3. ATENOLOL. [Concomitant]
     Active Substance: ATENOLOL
     Indication: HYPERTENSION
     Dosage: ONE IN THE MORNING AND THE SECOND AT 7 PM
     Route: 065
  4. TEGRETOL [Concomitant]
     Active Substance: CARBAMAZEPINE
     Indication: BIPOLAR DISORDER
     Route: 065
     Dates: start: 2001
  5. SIMVASTATIN. [Concomitant]
     Active Substance: SIMVASTATIN
     Route: 065
  6. GLIMEPIRIDE. [Concomitant]
     Active Substance: GLIMEPIRIDE
     Route: 065
  7. RIVOTRIL [Suspect]
     Active Substance: CLONAZEPAM
     Indication: BIPOLAR DISORDER
     Route: 048
     Dates: start: 2001

REACTIONS (8)
  - Suicidal ideation [Unknown]
  - Headache [Unknown]
  - Feeling cold [Unknown]
  - Blood cholesterol abnormal [Unknown]
  - Drug dose omission [Unknown]
  - Hypertension [Unknown]
  - Diabetes mellitus [Unknown]
  - Drug ineffective [Unknown]
